FAERS Safety Report 8517305-5 (Version None)
Quarter: 2012Q3

REPORT INFORMATION
  Report Type: 
  Country: None (occurrence: None)
  Receive Date: 20120718
  Receipt Date: 20120710
  Transmission Date: 20120928
  Serious: Yes (Hospitalization, Congenital Anomaly, Other)
  Sender: FDA-Public Use
  Company Number: DE-ASTRAZENECA-2012SE47293

PATIENT
  Age: 0 Week
  Sex: Male
  Weight: 2.5 kg

DRUGS (3)
  1. LEVOTHYROXINE SODIUM [Concomitant]
     Indication: HYPOTHYROIDISM
     Route: 064
     Dates: start: 20110604, end: 20120302
  2. SEROQUEL [Suspect]
     Indication: SLEEP DISORDER
     Route: 064
     Dates: start: 20110604, end: 20120302
  3. FOLIO [Concomitant]
     Indication: PROPHYLAXIS OF NEURAL TUBE DEFECT
     Route: 064

REACTIONS (3)
  - TALIPES [None]
  - PYLORIC STENOSIS [None]
  - SMALL FOR DATES BABY [None]
